FAERS Safety Report 21161122 (Version 1)
Quarter: 2022Q3

REPORT INFORMATION
  Report Type: Spontaneous
  Country: US (occurrence: None)
  Receive Date: 20220801
  Receipt Date: 20220801
  Transmission Date: 20221027
  Serious: Yes (Other)
  Sender: FDA-Public Use
  Company Number: None

PATIENT
  Age: 27 Year
  Sex: Male
  Weight: 74.8 kg

DRUGS (2)
  1. DOTAREM [Suspect]
     Active Substance: GADOTERATE MEGLUMINE
     Indication: Magnetic resonance imaging
     Dosage: FREQUENCY : ONCE;?
     Route: 042
     Dates: start: 20220719, end: 20220719
  2. DOTAREM [Suspect]
     Active Substance: GADOTERATE MEGLUMINE
     Indication: Scan with contrast

REACTIONS (4)
  - Contrast media reaction [None]
  - Urticaria [None]
  - Erythema [None]
  - Ocular hyperaemia [None]

NARRATIVE: CASE EVENT DATE: 20220719
